FAERS Safety Report 5010235-5 (Version None)
Quarter: 2006Q2

REPORT INFORMATION
  Report Type: 
  Country: None (occurrence: None)
  Receive Date: 20060524
  Receipt Date: 20060515
  Transmission Date: 20061013
  Serious: Yes (Life-Threatening, Hospitalization)
  Sender: FDA-Public Use
  Company Number: AU-MERCK-0605AUS00137

PATIENT
  Age: 75 Year
  Sex: Female
  Weight: 75 kg

DRUGS (8)
  1. ZETIA [Suspect]
     Indication: HYPERCHOLESTEROLAEMIA
     Route: 048
     Dates: start: 20060314, end: 20060401
  2. FLOXACILLIN [Concomitant]
     Indication: INFECTION
     Route: 065
     Dates: start: 20060404, end: 20060410
  3. DILTIAZEM HYDROCHLORIDE [Concomitant]
     Indication: HYPERTENSION
     Route: 065
     Dates: start: 19981101
  4. DILTIAZEM HYDROCHLORIDE [Concomitant]
     Indication: ANGINA PECTORIS
     Route: 065
     Dates: start: 19981101
  5. ASPIRIN [Concomitant]
     Indication: ANTICOAGULANT THERAPY
     Route: 065
     Dates: start: 19991101
  6. DEXTRAN 70 AND HYPROMELLOSE [Concomitant]
     Indication: DRY EYE
     Route: 065
     Dates: start: 19960701
  7. NITROGLYCERIN [Concomitant]
     Indication: ANGINA PECTORIS
     Route: 065
     Dates: start: 20030501
  8. CEFACLOR [Concomitant]
     Indication: INFECTION
     Route: 065
     Dates: start: 20060404, end: 20060409

REACTIONS (3)
  - ANGIONEUROTIC OEDEMA [None]
  - DYSPNOEA [None]
  - THROAT TIGHTNESS [None]
